FAERS Safety Report 6194679-4 (Version None)
Quarter: 2009Q2

REPORT INFORMATION
  Report Type: 
  Country: None (occurrence: None)
  Receive Date: 20090515
  Receipt Date: 20090515
  Transmission Date: 20091009
  Serious: Yes (Hospitalization)
  Sender: FDA-Public Use
  Company Number: None

PATIENT
  Sex: Female
  Weight: 67.5 kg

DRUGS (4)
  1. CARBOPLATIN [Suspect]
     Dosage: 393.2 MG
  2. TAXOL [Suspect]
     Dosage: 230.85 MG
  3. APREPITANT [Concomitant]
  4. PALANOSETRON [Concomitant]

REACTIONS (2)
  - DEEP VEIN THROMBOSIS [None]
  - ILEUS [None]
